FAERS Safety Report 23762601 (Version 1)
Quarter: 2024Q2

REPORT INFORMATION
  Report Type: Spontaneous
  Country: US (occurrence: None)
  Receive Date: 20240414
  Receipt Date: 20240414
  Transmission Date: 20240716
  Serious: No
  Sender: FDA-Public Use
  Company Number: None

PATIENT
  Sex: 0

DRUGS (1)
  1. COSMETICS [Suspect]
     Active Substance: COSMETICS

REACTIONS (4)
  - Application site discolouration [None]
  - Application site burn [None]
  - Product formulation issue [None]
  - Gingival discolouration [None]

NARRATIVE: CASE EVENT DATE: 20240414
